FAERS Safety Report 15424830 (Version 1)
Quarter: 2018Q3

REPORT INFORMATION
  Report Type: Spontaneous
  Country: US (occurrence: US)
  Receive Date: 20180925
  Receipt Date: 20180925
  Transmission Date: 20181010
  Serious: Yes (Other)
  Sender: FDA-Public Use
  Company Number: US-JNJFOC-20180925963

PATIENT
  Age: 54 Year
  Sex: Male
  Weight: 124.09 kg

DRUGS (1)
  1. INVOKANA [Suspect]
     Active Substance: CANAGLIFLOZIN
     Indication: PRODUCT USED FOR UNKNOWN INDICATION
     Route: 048

REACTIONS (5)
  - Foot amputation [Unknown]
  - Diabetic neuropathic ulcer [Unknown]
  - Cellulitis [Unknown]
  - Osteomyelitis [Unknown]
  - Localised infection [Unknown]

NARRATIVE: CASE EVENT DATE: 201701
